FAERS Safety Report 6917760-8 (Version None)
Quarter: 2010Q3

REPORT INFORMATION
  Report Type: 
  Country: None (occurrence: None)
  Receive Date: 20100810
  Receipt Date: 20100729
  Transmission Date: 20110219
  Serious: Yes (Other)
  Sender: FDA-Public Use
  Company Number: GB-PFIZER INC-2010095737

PATIENT
  Sex: Male

DRUGS (2)
  1. CHAMPIX [Suspect]
  2. ALCOHOL [Interacting]

REACTIONS (3)
  - ALCOHOL INTERACTION [None]
  - FEELING DRUNK [None]
  - LOSS OF CONSCIOUSNESS [None]
